FAERS Safety Report 7300837-5 (Version None)
Quarter: 2010Q4

REPORT INFORMATION
  Report Type: 
  Country: None (occurrence: None)
  Receive Date: 20101230
  Receipt Date: 20101004
  Transmission Date: 20110411
  Serious: Yes (Other)
  Sender: FDA-Public Use
  Company Number: 20100362

PATIENT
  Age: 38 Year
  Sex: Female
  Weight: 69.4003 kg

DRUGS (4)
  1. VENOFER [Suspect]
     Indication: ANAEMIA
     Dosage: 200 MG, IV BOLUS
     Route: 040
     Dates: start: 20100803, end: 20100803
  2. BENADRYL [Concomitant]
  3. PEPCID [Concomitant]
  4. DECADRON [Concomitant]

REACTIONS (1)
  - ANAPHYLACTOID REACTION [None]
